FAERS Safety Report 5676221-7 (Version None)
Quarter: 2008Q1

REPORT INFORMATION
  Report Type: 
  Country: None (occurrence: None)
  Receive Date: 20080321
  Receipt Date: 20080311
  Transmission Date: 20080703
  Serious: Yes (Other)
  Sender: FDA-Public Use
  Company Number: US-ELI_LILLY_AND_COMPANY-US200803002252

PATIENT
  Sex: Female

DRUGS (4)
  1. EVISTA [Suspect]
     Dosage: 60 MG, UNK
     Dates: start: 20040101, end: 20060101
  2. FOSAMAX [Concomitant]
  3. FLUOXETINE [Concomitant]
  4. ASPIRIN [Concomitant]

REACTIONS (3)
  - BLINDNESS UNILATERAL [None]
  - CEREBROVASCULAR ACCIDENT [None]
  - VITREOUS FLOATERS [None]
